FAERS Safety Report 15536723 (Version 1)
Quarter: 2018Q4

REPORT INFORMATION
  Report Type: Spontaneous
  Country: HR (occurrence: HR)
  Receive Date: 20181022
  Receipt Date: 20181022
  Transmission Date: 20190205
  Serious: Yes (Other)
  Sender: FDA-Public Use
  Company Number: HR-PFIZER INC-2018430196

PATIENT
  Sex: Female

DRUGS (3)
  1. ZOLOFT [Suspect]
     Active Substance: SERTRALINE HYDROCHLORIDE
     Dosage: 1 (UNIT UNKNOWN), 1X/DAY
     Route: 048
     Dates: start: 20180812, end: 20180812
  2. NORMABEL [Suspect]
     Active Substance: DIAZEPAM
     Dosage: 1 (UNIT UNKNOWN), 1X/DAY
     Route: 048
     Dates: start: 20180812, end: 20180812
  3. HALEA [Suspect]
     Active Substance: SERTRALINE HYDROCHLORIDE
     Dosage: 1 (UNIT UNKNOWN), 1X/DAY
     Route: 048
     Dates: start: 20180812, end: 20180812

REACTIONS (1)
  - Suicide attempt [Unknown]

NARRATIVE: CASE EVENT DATE: 20180812
